FAERS Safety Report 19888948 (Version 1)
Quarter: 2021Q3

REPORT INFORMATION
  Report Type: Spontaneous
  Country: DE (occurrence: DE)
  Receive Date: 20210928
  Receipt Date: 20210928
  Transmission Date: 20211014
  Serious: Yes (Hospitalization)
  Sender: FDA-Public Use
  Company Number: PHHY2018DE131863

PATIENT
  Age: 74 Year
  Sex: Male

DRUGS (10)
  1. DEXAMETHASONE. [Suspect]
     Active Substance: DEXAMETHASONE
     Dosage: 20 MG, QW
     Route: 048
     Dates: start: 20171208, end: 20171215
  2. REVLIMID [Suspect]
     Active Substance: LENALIDOMIDE
     Dosage: 50 MG, QD
     Route: 048
     Dates: start: 20171208, end: 20171212
  3. DEXAMETHASONE. [Suspect]
     Active Substance: DEXAMETHASONE
     Dosage: 20 MG, QW
     Route: 048
     Dates: start: 20180921, end: 20181012
  4. REVLIMID [Suspect]
     Active Substance: LENALIDOMIDE
     Dosage: 25 MG, QD
     Route: 048
     Dates: start: 20180824, end: 20180913
  5. REVLIMID [Suspect]
     Active Substance: LENALIDOMIDE
     Indication: PLASMA CELL MYELOMA
     Dosage: 50 MG, QD
     Route: 048
     Dates: start: 20171006, end: 20171011
  6. REVLIMID [Suspect]
     Active Substance: LENALIDOMIDE
     Dosage: 50 MG, QD
     Route: 048
     Dates: start: 20171110, end: 20171130
  7. DEXAMETHASONE. [Suspect]
     Active Substance: DEXAMETHASONE
     Dosage: 20 MG, QW
     Route: 048
     Dates: start: 20171018, end: 20171101
  8. DEXAMETHASONE. [Suspect]
     Active Substance: DEXAMETHASONE
     Dosage: 20 MG, QW
     Route: 048
     Dates: start: 20171110, end: 20171124
  9. DEXAMETHASONE. [Suspect]
     Active Substance: DEXAMETHASONE
     Indication: PLASMA CELL MYELOMA
     Dosage: 40 MG, QW
     Route: 048
     Dates: start: 20171006, end: 20171011
  10. REVLIMID [Suspect]
     Active Substance: LENALIDOMIDE
     Dosage: 50 MG, QD
     Route: 048
     Dates: start: 20171018, end: 20171103

REACTIONS (3)
  - Abdominal wall abscess [Recovered/Resolved]
  - Swelling face [Recovered/Resolved]
  - Rash [Recovered/Resolved]

NARRATIVE: CASE EVENT DATE: 20180502
